FAERS Safety Report 7618995-1 (Version None)
Quarter: 2011Q3

REPORT INFORMATION
  Report Type: 
  Country: None (occurrence: None)
  Receive Date: 20110718
  Receipt Date: 20110707
  Transmission Date: 20111222
  Serious: Yes (Other)
  Sender: FDA-Public Use
  Company Number: US-ASTRAZENECA-2011SE40784

PATIENT
  Age: 57 Year
  Sex: Female

DRUGS (2)
  1. NITROGLYCERIN [Concomitant]
  2. TOPROL-XL [Suspect]
     Route: 048

REACTIONS (4)
  - CATHETERISATION CARDIAC [None]
  - CORONARY ARTERY OCCLUSION [None]
  - CARDIAC DISORDER [None]
  - NASOPHARYNGITIS [None]
